FAERS Safety Report 9743900 (Version 4)
Quarter: 2014Q2

REPORT INFORMATION
  Report Type: Spontaneous
  Country: US (occurrence: US)
  Receive Date: 20131210
  Receipt Date: 20140404
  Transmission Date: 20141212
  Serious: No
  Sender: FDA-Public Use
  Company Number: US-BIOGENIDEC-2013BI097579

PATIENT
  Age: 39 Year
  Sex: Female

DRUGS (13)
  1. TECFIDERA [Suspect]
     Indication: MULTIPLE SCLEROSIS
     Route: 048
     Dates: start: 20130911, end: 20130917
  2. TECFIDERA [Suspect]
     Indication: MULTIPLE SCLEROSIS
     Route: 048
     Dates: start: 20130918
  3. ADDERALL XR [Concomitant]
  4. AMANTADINE HCL [Concomitant]
  5. BIOTIN [Concomitant]
  6. GABAPENTIN [Concomitant]
  7. HYDROCODONE-ACETAMINOPHEN [Concomitant]
  8. LEXAPRO [Concomitant]
  9. MYRBETRIQ [Concomitant]
  10. NORTRIPYLINE HCL [Concomitant]
  11. OMEPRAZOLE [Concomitant]
  12. PROMETHAZINE HCL [Concomitant]
  13. VITAMIN D3 [Concomitant]

REACTIONS (6)
  - Fatigue [Not Recovered/Not Resolved]
  - Flushing [Not Recovered/Not Resolved]
  - Pruritus [Not Recovered/Not Resolved]
  - Nausea [Not Recovered/Not Resolved]
  - Vomiting [Not Recovered/Not Resolved]
  - Diarrhoea [Unknown]
